FAERS Safety Report 7173917-5 (Version None)
Quarter: 2010Q4

REPORT INFORMATION
  Report Type: 
  Country: None (occurrence: None)
  Receive Date: 20101202
  Receipt Date: 20101122
  Transmission Date: 20110411
  Serious: Yes (Other)
  Sender: FDA-Public Use
  Company Number: 2010SP061640

PATIENT
  Age: 6 Year
  Sex: Female

DRUGS (6)
  1. NOXAFIL [Suspect]
     Indication: FUNGAL INFECTION
     Dates: start: 20101104
  2. VINCRISTINE [Suspect]
     Indication: PRODUCT USED FOR UNKNOWN INDICATION
     Dosage: QM
  3. PANTOPRAZOLE [Concomitant]
  4. ENOXAPARIN SODIUM [Concomitant]
  5. FILGRASTIM [Concomitant]
  6. GABAPENTIN [Concomitant]

REACTIONS (1)
  - NEUROPATHY PERIPHERAL [None]
